FAERS Safety Report 5869692-4 (Version None)
Quarter: 2008Q3

REPORT INFORMATION
  Report Type: 
  Country: None (occurrence: None)
  Receive Date: 20080904
  Receipt Date: 20080829
  Transmission Date: 20090109
  Serious: Yes (Hospitalization, Other)
  Sender: FDA-Public Use
  Company Number: US-BAYER-200832332NA

PATIENT
  Sex: Female

DRUGS (1)
  1. YAZ [Suspect]
     Indication: MENSTRUATION IRREGULAR
     Route: 048
     Dates: start: 20080707, end: 20080809

REACTIONS (4)
  - DYSPNOEA [None]
  - FEELING ABNORMAL [None]
  - HAEMOPTYSIS [None]
  - PULMONARY THROMBOSIS [None]
